FAERS Safety Report 5357705-8 (Version None)
Quarter: 2007Q2

REPORT INFORMATION
  Report Type: 
  Country: None (occurrence: None)
  Receive Date: 20070614
  Receipt Date: 20070608
  Transmission Date: 20071010
  Serious: Yes (Hospitalization, Other)
  Sender: FDA-Public Use
  Company Number: US-PFIZER INC-2007047289

PATIENT
  Sex: Female
  Weight: 61.363 kg

DRUGS (8)
  1. DETROL LA [Suspect]
     Indication: POLLAKIURIA
     Dates: start: 20070501, end: 20070501
  2. AVALIDE [Concomitant]
  3. PRILOSEC [Concomitant]
  4. AMLODIPINE [Concomitant]
  5. CLINDAMYCIN HCL [Concomitant]
  6. METAMIZOLE [Concomitant]
  7. ASPIRIN [Concomitant]
  8. MULTIVITAMIN [Concomitant]

REACTIONS (6)
  - COGNITIVE DISORDER [None]
  - CONFUSIONAL STATE [None]
  - LOSS OF CONSCIOUSNESS [None]
  - MEMORY IMPAIRMENT [None]
  - RESTLESSNESS [None]
  - SYNCOPE [None]
